FAERS Safety Report 14765113 (Version 2)
Quarter: 2018Q2

REPORT INFORMATION
  Report Type: Spontaneous
  Country: None (occurrence: US)
  Receive Date: 20180416
  Receipt Date: 20180501
  Transmission Date: 20180711
  Serious: No
  Sender: FDA-Public Use
  Company Number: US-RARE DISEASE THERAPEUTICS, INC.-2045805

PATIENT
  Age: 6 Year
  Sex: Female
  Weight: 22.23 kg

DRUGS (2)
  1. MULTIVITAMIN (ASCORBIC ACID) [Concomitant]
     Active Substance: VITAMINS
  2. PURIXAN [Suspect]
     Active Substance: MERCAPTOPURINE
     Indication: CROHN^S DISEASE
     Route: 048
     Dates: start: 20160406

REACTIONS (2)
  - Aphthous ulcer [Not Recovered/Not Resolved]
  - Off label use [None]

NARRATIVE: CASE EVENT DATE: 20160901
